FAERS Safety Report 9119252 (Version 4)
Quarter: 2014Q1

REPORT INFORMATION
  Report Type: Spontaneous
  Country: FR (occurrence: FR)
  Receive Date: 20130226
  Receipt Date: 20140107
  Transmission Date: 20141002
  Serious: Yes (Other)
  Sender: FDA-Public Use
  Company Number: PHHY2013FR017442

PATIENT
  Age: 66 Year
  Sex: Female

DRUGS (4)
  1. AFINITOR [Suspect]
     Indication: CARCINOID TUMOUR
     Dosage: 10 MG, QD
     Route: 048
     Dates: start: 201010, end: 201212
  2. AFINITOR [Suspect]
     Dosage: 5 MG, QD
     Route: 048
     Dates: start: 201212, end: 201305
  3. AFINITOR [Suspect]
     Dosage: 10 MG, QD
     Route: 048
     Dates: start: 201305
  4. SOMATULINA LP [Concomitant]
     Dosage: 90 MG, EVERY 4 WEEKS
     Route: 065
     Dates: start: 201010

REACTIONS (2)
  - Myelodysplastic syndrome [Unknown]
  - Aplastic anaemia [Not Recovered/Not Resolved]
